FAERS Safety Report 10019108 (Version 2)
Quarter: 2014Q1

REPORT INFORMATION
  Report Type: Spontaneous
  Country: TR (occurrence: TR)
  Receive Date: 20140318
  Receipt Date: 20140326
  Transmission Date: 20141002
  Serious: Yes (Death, Other)
  Sender: FDA-Public Use
  Company Number: TR-CELGENEUS-161-21880-14031316

PATIENT
  Sex: 0

DRUGS (4)
  1. REVLIMID [Suspect]
     Indication: PLASMA CELL MYELOMA
     Route: 048
  2. REVLIMID [Suspect]
     Route: 048
  3. VELCADE [Concomitant]
     Indication: PLASMA CELL MYELOMA
     Route: 065
  4. DEXAMETHASONE [Concomitant]
     Indication: PLASMA CELL MYELOMA
     Route: 065

REACTIONS (22)
  - Death [Fatal]
  - Deep vein thrombosis [Unknown]
  - Hypersensitivity [Unknown]
  - Pancytopenia [Unknown]
  - Plasma cell myeloma recurrent [Unknown]
  - No therapeutic response [Unknown]
  - Infection [Unknown]
  - Thrombocytopenia [Unknown]
  - Nausea [Unknown]
  - Pneumonia [Unknown]
  - Dyspnoea [Unknown]
  - Rash [Unknown]
  - Respiratory tract infection [Unknown]
  - Diarrhoea [Unknown]
  - Neuropathy peripheral [Unknown]
  - Asthenia [Unknown]
  - Bradycardia [Unknown]
  - Enterocolitis [Unknown]
  - Thrombophlebitis [Unknown]
  - Somnolence [Unknown]
  - Dizziness [Unknown]
  - Neutropenia [Unknown]
